FAERS Safety Report 14110018 (Version 1)
Quarter: 2017Q4

REPORT INFORMATION
  Report Type: Spontaneous
  Country: US (occurrence: US)
  Receive Date: 20171020
  Receipt Date: 20171020
  Transmission Date: 20180321
  Serious: Yes (Other)
  Sender: FDA-Public Use
  Company Number: US-TEVA-752822USA

PATIENT
  Sex: Female

DRUGS (1)
  1. SPRINTEC [Suspect]
     Active Substance: ETHINYL ESTRADIOL\NORGESTIMATE
     Indication: CONTRACEPTION
     Dosage: 0.250 MG/0.035 MG
     Route: 065

REACTIONS (5)
  - Exposure during pregnancy [Unknown]
  - Pregnancy on oral contraceptive [Unknown]
  - Vaginal discharge [Unknown]
  - Drug administration error [Unknown]
  - Product use issue [Unknown]
